FAERS Safety Report 7395331-X (Version None)
Quarter: 2011Q2

REPORT INFORMATION
  Report Type: 
  Country: None (occurrence: None)
  Receive Date: 20110405
  Receipt Date: 20110330
  Transmission Date: 20111010
  Serious: No
  Sender: FDA-Public Use
  Company Number: US-PFIZER INC-US-WYE-H14359710

PATIENT
  Sex: Female

DRUGS (4)
  1. EFFEXOR XR [Suspect]
     Dosage: UNK MG, UNK
     Route: 065
  2. VENLAFAXINE HCL [Suspect]
     Dosage: UNK
  3. ZOLOFT [Suspect]
     Dosage: 50 MG, UNK
     Dates: start: 19920101, end: 19950101
  4. EFFEXOR [Suspect]
     Dosage: UNKNOWN
     Route: 065

REACTIONS (4)
  - DRUG INTOLERANCE [None]
  - DRUG WITHDRAWAL SYNDROME [None]
  - HEADACHE [None]
  - DIZZINESS [None]
